FAERS Safety Report 7635488-6 (Version None)
Quarter: 2011Q3

REPORT INFORMATION
  Report Type: 
  Country: None (occurrence: None)
  Receive Date: 20110726
  Receipt Date: 20110726
  Transmission Date: 20111222
  Serious: No
  Sender: FDA-Public Use
  Company Number: None

PATIENT
  Sex: Female
  Weight: 68.038 kg

DRUGS (1)
  1. NITROFURANTOIN (MONOHYDRATE/MACROCRYSTALS) [Suspect]
     Indication: DYSURIA
     Dosage: 2 CAPSULES A DAY
     Dates: start: 20110714, end: 20110720

REACTIONS (4)
  - ASTHENIA [None]
  - PRURITUS GENERALISED [None]
  - BURNING SENSATION [None]
  - ABDOMINAL PAIN UPPER [None]
